FAERS Safety Report 17851394 (Version 2)
Quarter: 2020Q3

REPORT INFORMATION
  Report Type: Report from Study
  Country: US (occurrence: US)
  Receive Date: 20200602
  Receipt Date: 20200702
  Transmission Date: 20201103
  Serious: Yes (Death, Hospitalization)
  Sender: FDA-Public Use
  Company Number: US-ADAMAS PHARMA, LLC-2020ADA01141

PATIENT
  Age: 86 Year
  Sex: Male

DRUGS (2)
  1. UNSPECIFIED LEVODOPA?BASED THERAPY [Concomitant]
     Active Substance: LEVODOPA
  2. GOCOVRI [Suspect]
     Active Substance: AMANTADINE
     Indication: DYSKINESIA
     Dosage: 274 MG, 1X/DAY AT BEDTIME
     Route: 048
     Dates: start: 20200225, end: 2020

REACTIONS (4)
  - Fall [Unknown]
  - Death [Fatal]
  - Hip fracture [Unknown]
  - Cerebrovascular accident [Unknown]

NARRATIVE: CASE EVENT DATE: 2020
